FAERS Safety Report 17920849 (Version 1)
Quarter: 2020Q2

REPORT INFORMATION
  Report Type: Spontaneous
  Country: DE (occurrence: DE)
  Receive Date: 20200622
  Receipt Date: 20200622
  Transmission Date: 20200714
  Serious: Yes (Death, Hospitalization, Other)
  Sender: FDA-Public Use
  Company Number: DE-TEVA-2020-DE-1788800

PATIENT
  Age: 91 Year
  Sex: Male

DRUGS (15)
  1. TILIDINE/NALOXONE [Concomitant]
     Active Substance: NALOXONE HYDROCHLORIDE\TILIDINE HYDROCHLORIDE
     Dosage: 2 DOSAGE FORMS DAILY; 4|50 MG, 1-0-1-0
     Dates: end: 20200204
  2. PANTOPRAZOL [Concomitant]
     Active Substance: PANTOPRAZOLE SODIUM
     Dosage: 80 MILLIGRAM DAILY; 1-0-1-0
     Dates: end: 20200204
  3. LERCANIDIPINE [Concomitant]
     Active Substance: LERCANIDIPINE
     Dosage: 40 MILLIGRAM DAILY; 1-0-1-0
     Dates: end: 20200204
  4. METAMIZOL [Concomitant]
     Active Substance: METAMIZOLE SODIUM
     Dosage: 30 IF NECESSARY
     Dates: end: 20200204
  5. BIFITERAL [Concomitant]
     Active Substance: LACTULOSE
     Dosage: ON NEED
     Dates: end: 20200204
  6. CANDESARTAN. [Concomitant]
     Active Substance: CANDESARTAN
     Dosage: 16 MILLIGRAM DAILY;  1-0-0-0
     Dates: end: 20200204
  7. FENTANYL. [Concomitant]
     Active Substance: FENTANYL
     Dosage: 25 UG / H EVERY 3RD DAY
     Dates: end: 20200204
  8. METOPROLOL. [Concomitant]
     Active Substance: METOPROLOL
     Dosage: 95 MILLIGRAM DAILY;  1-0-1-0
     Dates: end: 20200204
  9. XIPAMIDE [Suspect]
     Active Substance: XIPAMIDE
     Dosage: 5 MG, NEED
     Dates: end: 20200204
  10. APIXABAN [Suspect]
     Active Substance: APIXABAN
     Dosage: 5 MILLIGRAM DAILY; 1-0-1-0
     Dates: end: 20200204
  11. DEKRISTOL 1000 [Concomitant]
     Dosage: 1000 IU / EVERY OTHER DAY, 1-0-0-0
     Dates: end: 20200204
  12. ATORVASTATIN [Concomitant]
     Active Substance: ATORVASTATIN
     Dosage: 40 MILLIGRAM DAILY;  0-0-1-0
     Dates: end: 20200204
  13. TORASEMID [Suspect]
     Active Substance: TORSEMIDE
     Dosage: 10 MILLIGRAM DAILY;  1-0-0-0
     Dates: end: 20200204
  14. KALIUM [Concomitant]
     Active Substance: POTASSIUM CHLORIDE
     Dosage: 600 MG / EVERY OTHER DAY, 1-0-0-0
     Dates: end: 20200204
  15. NOVOMIX [Concomitant]
     Active Substance: INSULIN ASPART
     Dosage: 30 DOSAGE FORMS DAILY; 90|210 IE, 15-0-15-0
     Route: 058
     Dates: end: 20200204

REACTIONS (7)
  - Vomiting [Unknown]
  - Nausea [Unknown]
  - Dehydration [Unknown]
  - General physical health deterioration [Unknown]
  - Haematemesis [Unknown]
  - Asthenia [Unknown]
  - Fatigue [Unknown]

NARRATIVE: CASE EVENT DATE: 20200128
